FAERS Safety Report 14662396 (Version 1)
Quarter: 2018Q1

REPORT INFORMATION
  Report Type: Report from Study
  Country: None (occurrence: DE)
  Receive Date: 20180321
  Receipt Date: 20180321
  Transmission Date: 20180509
  Serious: Yes (Hospitalization)
  Sender: FDA-Public Use
  Company Number: DE-ABBVIE-18K-062-2290506-00

PATIENT
  Sex: Male

DRUGS (2)
  1. DUODOPA [Suspect]
     Active Substance: CARBIDOPA\LEVODOPA
     Indication: PARKINSON^S DISEASE
     Dosage: MD 9 ML; CRD 2.5 ML/ H; ED 1 ML
     Route: 050
     Dates: start: 20150518, end: 201802
  2. DUODOPA [Suspect]
     Active Substance: CARBIDOPA\LEVODOPA
     Dosage: MD 5 ML; CRD 2.3 ML/ H; CRN 2 ML/ H; ED 1 ML
     Route: 050
     Dates: start: 201802

REACTIONS (1)
  - General physical health deterioration [Recovering/Resolving]
